FAERS Safety Report 7274699-9 (Version None)
Quarter: 2011Q1

REPORT INFORMATION
  Report Type: 
  Country: None (occurrence: None)
  Receive Date: 20110204
  Receipt Date: 20110131
  Transmission Date: 20110831
  Serious: Yes (Death)
  Sender: FDA-Public Use
  Company Number: US-GENZYME-CAMP-1001338

PATIENT
  Age: 61 Year

DRUGS (5)
  1. FLUDARA [Suspect]
     Indication: STEM CELL TRANSPLANT
     Dosage: 30 MG/M2, QD X 4 DAYS
     Route: 065
  2. CAMPATH [Suspect]
     Indication: STEM CELL TRANSPLANT
     Dosage: 20 MG, QDX5, COMPLETED DAY 0
     Route: 042
  3. CYCLOPHOSPHAMIDE [Suspect]
     Indication: STEM CELL TRANSPLANT
     Dosage: 500 MG/M2, QD X 4 DAYS
     Route: 065
  4. FILGRASTIM [Concomitant]
     Indication: NEUTROPENIA
     Dosage: 5 MCG/KG, UNTIL ANC WAS GREATER THAN 1 X10E/L
     Route: 065
  5. PROLEUKIN [Concomitant]
     Indication: IMMUNE SYSTEM DISORDER
     Dosage: 1 MU/M2 FOR 5 DAYS/WEEK (M-F) FOR 4 WEEKS, 2 WEEKS OFF, REPEAT CYCLE UP TO 1 YEAR- TOTAL OF 2 CYCLES
     Route: 058

REACTIONS (1)
  - ACUTE MYELOID LEUKAEMIA RECURRENT [None]
